FAERS Safety Report 15346477 (Version 2)
Quarter: 2018Q4

REPORT INFORMATION
  Report Type: Spontaneous
  Country: US (occurrence: US)
  Receive Date: 20180904
  Receipt Date: 20181003
  Transmission Date: 20190204
  Serious: No
  Sender: FDA-Public Use
  Company Number: US-PFIZER INC-2018352845

PATIENT
  Age: 34 Year
  Sex: Female

DRUGS (1)
  1. EUCRISA [Suspect]
     Active Substance: CRISABOROLE
     Dosage: UNK, 2X/DAY [APPLY A THIN LAYER TO THE AFFECTED AREA(S) BY TOPICAL ROUTE 2 TIMES PER DAY]
     Route: 061

REACTIONS (1)
  - Allergic reaction to excipient [Unknown]
